FAERS Safety Report 10014483 (Version 1)
Quarter: 2014Q1

REPORT INFORMATION
  Report Type: Spontaneous
  Country: CA (occurrence: CA)
  Receive Date: 20140317
  Receipt Date: 20140317
  Transmission Date: 20141002
  Serious: Yes (Other)
  Sender: FDA-Public Use
  Company Number: CA-009507513-1403CAN003893

PATIENT
  Age: 8 Week
  Sex: 0

DRUGS (15)
  1. ISENTRESS [Suspect]
     Dosage: 400 MG, BID
     Route: 064
  2. ABACAVIR [Suspect]
     Dosage: 300 MG, BID
     Route: 064
  3. ACYCLOVIR [Suspect]
     Dosage: UNK
     Route: 064
  4. AZITHROMYCIN [Suspect]
     Dosage: UNK
     Route: 064
  5. BACTRIM [Suspect]
     Dosage: UNK
     Route: 064
  6. FOLIC ACID [Concomitant]
     Route: 065
  7. INTELENCE [Suspect]
     Dosage: 200 MG, BID
     Route: 064
  8. IRON (UNSPECIFIED) [Concomitant]
     Dosage: UNK
     Route: 065
  9. LAMIVUDINE [Suspect]
     Dosage: 150 MG, BID
     Route: 064
  10. MAGNESIUM GLUCONATE [Concomitant]
     Route: 065
  11. IRON (UNSPECIFIED) (+) MINERALS (UNSPECIFIED) (+) VITAMINS (UNSPECIFIE [Concomitant]
     Route: 065
  12. PREZISTA [Suspect]
     Dosage: 600 MG, BID
     Route: 064
  13. RITONAVIR [Suspect]
     Dosage: 100 MG, BID
  14. TENOFOVIR [Suspect]
     Dosage: 300 MG, QD
     Route: 064
  15. ZIDOVUDINE [Suspect]
     Dosage: 300 MG, BID
     Route: 064

REACTIONS (2)
  - Anaemia [Recovered/Resolved]
  - Foetal exposure during pregnancy [Recovered/Resolved]
